FAERS Safety Report 8890363 (Version 2)
Quarter: 2013Q1

REPORT INFORMATION
  Report Type: Spontaneous
  Country: US (occurrence: US)
  Receive Date: 20121106
  Receipt Date: 20130123
  Transmission Date: 20140127
  Serious: No
  Sender: FDA-Public Use
  Company Number: US-009507513-1210USA009245

PATIENT
  Sex: Female

DRUGS (2)
  1. IMPLANON [Suspect]
     Indication: CONTRACEPTION
     Dosage: 1 DF, UNK
     Route: 059
     Dates: start: 201006, end: 201210
  2. IMPLANON [Suspect]
     Dosage: 1 DF, UNK
     Route: 059
     Dates: start: 201210

REACTIONS (8)
  - Malaise [Unknown]
  - Implant site bruising [Unknown]
  - Device breakage [Unknown]
  - Nausea [Unknown]
  - Dizziness [Unknown]
  - Application site anaesthesia [Unknown]
  - Implant site pain [Unknown]
  - Limb discomfort [Unknown]
